FAERS Safety Report 11890147 (Version 1)
Quarter: 2016Q1

REPORT INFORMATION
  Report Type: Spontaneous
  Country: US (occurrence: US)
  Receive Date: 20160105
  Receipt Date: 20160105
  Transmission Date: 20160526
  Serious: Yes (Other)
  Sender: FDA-Public Use
  Company Number: US-MEDTRONIC-1046166

PATIENT
  Sex: Male

DRUGS (25)
  1. PRAZOSIN HYDROCHLORIDE. [Suspect]
     Active Substance: PRAZOSIN HYDROCHLORIDE
     Route: 048
  2. CATAPRES [Suspect]
     Active Substance: CLONIDINE HYDROCHLORIDE
     Route: 048
  3. FLOMAX [Suspect]
     Active Substance: TAMSULOSIN HYDROCHLORIDE
     Route: 048
  4. OMEPRAZOLE. [Suspect]
     Active Substance: OMEPRAZOLE
  5. SYNTHROID [Suspect]
     Active Substance: LEVOTHYROXINE SODIUM
     Route: 048
  6. LAMICTAL [Suspect]
     Active Substance: LAMOTRIGINE
     Route: 048
  7. ZOFRAN [Suspect]
     Active Substance: ONDANSETRON HYDROCHLORIDE
     Route: 048
  8. CARBAMAZEPINE ER [Suspect]
     Active Substance: CARBAMAZEPINE
     Route: 048
  9. ATORVASTATIN CALCIUM. [Suspect]
     Active Substance: ATORVASTATIN CALCIUM
     Route: 048
  10. EVZIO [Suspect]
     Active Substance: NALOXONE HYDROCHLORIDE
  11. BACLOFEN INTRATHECAL 300 MCG/ML [Suspect]
     Active Substance: BACLOFEN
     Indication: PAIN
  12. MORPHINE INTRATHECAL 20 MG/ML [Suspect]
     Active Substance: MORPHINE
  13. CARAFATE [Suspect]
     Active Substance: SUCRALFATE
     Route: 048
  14. ALLEGRA [Suspect]
     Active Substance: FEXOFENADINE HYDROCHLORIDE
     Route: 048
  15. SEROQUEL [Suspect]
     Active Substance: QUETIAPINE FUMARATE
     Route: 048
  16. VALIUM [Suspect]
     Active Substance: DIAZEPAM
     Route: 048
  17. RELISTOR [Suspect]
     Active Substance: METHYLNALTREXONE BROMIDE
     Route: 058
  18. LITHIUM CARBONATE. [Suspect]
     Active Substance: LITHIUM CARBONATE
     Route: 048
  19. CELEBREX [Suspect]
     Active Substance: CELECOXIB
     Route: 048
  20. CYCLOBENZAPRINE HYDROCHLORIDE. [Suspect]
     Active Substance: CYCLOBENZAPRINE HYDROCHLORIDE
     Route: 048
  21. KETAMINE HYDROCHLORIDE. [Suspect]
     Active Substance: KETAMINE HYDROCHLORIDE
  22. BUPIVACAINE HCL [Suspect]
     Active Substance: BUPIVACAINE HYDROCHLORIDE
  23. IMITREX [Suspect]
     Active Substance: SUMATRIPTAN SUCCINATE
     Route: 058
  24. ZOLOFT [Suspect]
     Active Substance: SERTRALINE HYDROCHLORIDE
  25. OXYCODONE HYDROCHLORIDE. [Suspect]
     Active Substance: OXYCODONE HYDROCHLORIDE
     Route: 048

REACTIONS (52)
  - Decreased appetite [None]
  - Renal cyst [None]
  - Hypercholesterolaemia [None]
  - Movement disorder [None]
  - Muscle spasms [None]
  - Tremor [None]
  - Mobility decreased [None]
  - Anal incontinence [None]
  - Ischaemia [None]
  - Insomnia [None]
  - Muscular weakness [None]
  - Dyspnoea [None]
  - Constipation [None]
  - Diverticulitis [None]
  - Eczema [None]
  - Irritable bowel syndrome [None]
  - Hyperkeratosis [None]
  - Sleep disorder [None]
  - Muscle spasticity [None]
  - Asthenia [None]
  - No therapeutic response [None]
  - Urinary incontinence [None]
  - Gastritis [None]
  - Hypogonadism male [None]
  - Intracranial aneurysm [None]
  - Migraine [None]
  - Nausea [None]
  - Hypoaesthesia [None]
  - Paraplegia [None]
  - Abdominal pain [None]
  - Fatigue [None]
  - Back pain [None]
  - Polyp [None]
  - Skin lesion [None]
  - Anxiety [None]
  - Benign prostatic hyperplasia [None]
  - Diplopia [None]
  - Hypokalaemia [None]
  - Urinary retention [None]
  - Joint crepitation [None]
  - Discomfort [None]
  - Gastrooesophageal reflux disease [None]
  - Hypoacusis [None]
  - Pain [None]
  - Seizure [None]
  - Performance status decreased [None]
  - Muscle tightness [None]
  - Sleep apnoea syndrome [None]
  - Grimacing [None]
  - Psoriasis [None]
  - Myalgia [None]
  - Tachyphrenia [None]
